FAERS Safety Report 7334434-2 (Version None)
Quarter: 2011Q1

REPORT INFORMATION
  Report Type: 
  Country: None (occurrence: None)
  Receive Date: 20110307
  Receipt Date: 20110301
  Transmission Date: 20110831
  Serious: Yes (Death)
  Sender: FDA-Public Use
  Company Number: PHHY2011CO16981

PATIENT
  Sex: Female

DRUGS (5)
  1. CLEXANE [Concomitant]
     Dosage: 40 MG, BID
     Route: 058
  2. ACLASTA [Suspect]
     Dosage: 5 MG/100 ML/YEAR
     Dates: start: 20100101
  3. CALCIFORTE [Concomitant]
  4. ACLASTA [Suspect]
     Indication: OSTEOPOROSIS
     Dosage: 5 MG/100 ML/YEAR
     Dates: start: 20070101
  5. VITAMIN D [Concomitant]

REACTIONS (4)
  - CEREBROVASCULAR ACCIDENT [None]
  - PNEUMONIA [None]
  - DYSPNOEA [None]
  - CARDIO-RESPIRATORY ARREST [None]
